FAERS Safety Report 8886614 (Version 2)
Quarter: 2012Q4

REPORT INFORMATION
  Report Type: 
  Country: KR (occurrence: KR)
  Receive Date: 20121105
  Receipt Date: 20121221
  Transmission Date: 20130627
  Serious: Yes (Hospitalization)
  Sender: FDA-Public Use
  Company Number: KR-ELI_LILLY_AND_COMPANY-KR201210008563

PATIENT
  Age: 63 Year
  Sex: Female

DRUGS (1)
  1. HUMALOG 25% LISPRO, 75% NPL [Suspect]
     Indication: TYPE 2 DIABETES MELLITUS
     Dosage: 8 u, tid
     Route: 058
     Dates: start: 20120920

REACTIONS (3)
  - Brain neoplasm malignant [Unknown]
  - Dysuria [Recovered/Resolved]
  - Depressed level of consciousness [Recovered/Resolved]
